FAERS Safety Report 9903885 (Version 3)
Quarter: 2014Q1

REPORT INFORMATION
  Report Type: Spontaneous
  Country: CA (occurrence: CA)
  Receive Date: 20140218
  Receipt Date: 20140325
  Transmission Date: 20141002
  Serious: Yes (Other)
  Sender: FDA-Public Use
  Company Number: CA-ROCHE-1321034

PATIENT
  Age: 63 Year
  Sex: Female
  Weight: 52.6 kg

DRUGS (15)
  1. RITUXAN [Suspect]
     Indication: RHEUMATOID ARTHRITIS
     Route: 042
     Dates: start: 2010, end: 2010
  2. NAPROXEN [Concomitant]
     Route: 065
  3. AZATHIOPRINE [Concomitant]
     Route: 065
  4. PREDNISONE [Concomitant]
  5. OMEPRAZOLE [Concomitant]
  6. RISEDRONATE SODIUM [Concomitant]
  7. ASA [Concomitant]
  8. PROGESTERONE [Concomitant]
  9. ESTROGEL [Concomitant]
  10. ATIVAN [Concomitant]
     Route: 065
  11. TYLENOL [Concomitant]
     Route: 065
  12. SELENIUM [Concomitant]
  13. VITAMIN B12 [Concomitant]
  14. LUTEIN [Concomitant]
  15. FERAMAX [Concomitant]

REACTIONS (6)
  - Ankle deformity [Not Recovered/Not Resolved]
  - Breast calcifications [Not Recovered/Not Resolved]
  - Anaemia [Unknown]
  - White blood cell count increased [Unknown]
  - Urinary tract infection [Recovering/Resolving]
  - Skin infection [Unknown]
